FAERS Safety Report 18000114 (Version 1)
Quarter: 2020Q3

REPORT INFORMATION
  Report Type: Spontaneous
  Country: DE (occurrence: DE)
  Receive Date: 20200709
  Receipt Date: 20200709
  Transmission Date: 20201103
  Serious: Yes (Other)
  Sender: FDA-Public Use
  Company Number: DE-ROCHE-2638784

PATIENT
  Age: 60 Year
  Sex: Female

DRUGS (1)
  1. XOLAIR [Suspect]
     Active Substance: OMALIZUMAB
     Indication: ASTHMA
     Route: 065
     Dates: start: 202002

REACTIONS (11)
  - Haematoma [Not Recovered/Not Resolved]
  - Diarrhoea [Unknown]
  - Tracheal abscess [Unknown]
  - Cardiovascular disorder [Unknown]
  - Weight abnormal [Unknown]
  - Myalgia [Not Recovered/Not Resolved]
  - Night sweats [Recovering/Resolving]
  - Weight decreased [Not Recovered/Not Resolved]
  - Blood lactate dehydrogenase [Unknown]
  - Blood creatine phosphokinase increased [Unknown]
  - Influenza like illness [Unknown]

NARRATIVE: CASE EVENT DATE: 20200702
